FAERS Safety Report 23230398 (Version 3)
Quarter: 2024Q1

REPORT INFORMATION
  Report Type: Spontaneous
  Country: US (occurrence: US)
  Receive Date: 20231127
  Receipt Date: 20240219
  Transmission Date: 20240410
  Serious: No
  Sender: FDA-Public Use
  Company Number: US-SA-SAC20231122001110

PATIENT
  Sex: Female
  Weight: 83 kg

DRUGS (1)
  1. DUPIXENT [Suspect]
     Active Substance: DUPILUMAB
     Indication: Asthma
     Dosage: 300 MG, QOW
     Route: 058

REACTIONS (5)
  - Abdominal discomfort [Unknown]
  - Gastrointestinal disorder [Unknown]
  - Nausea [Unknown]
  - Symptom recurrence [Not Recovered/Not Resolved]
  - Dizziness [Unknown]
